FAERS Safety Report 4976229-0 (Version None)
Quarter: 2006Q2

REPORT INFORMATION
  Report Type: 
  Country: None (occurrence: None)
  Receive Date: 20060419
  Receipt Date: 20060407
  Transmission Date: 20061013
  Serious: Yes (Death, Other)
  Sender: FDA-Public Use
  Company Number: CA-JNJFOC-20060202390

PATIENT
  Age: 74 Year
  Sex: Male

DRUGS (3)
  1. GALANTAMINE HYDROBROMIDE [Suspect]
  2. GALANTAMINE HYDROBROMIDE [Suspect]
     Indication: DEMENTIA
     Dosage: FOR TWO WEEKS
  3. DONEPEZIL HCL [Suspect]
     Indication: DEMENTIA

REACTIONS (6)
  - AGITATION [None]
  - DEATH [None]
  - DELUSION [None]
  - HALLUCINATION, VISUAL [None]
  - INSOMNIA [None]
  - PNEUMONIA [None]
